FAERS Safety Report 5987386-1 (Version None)
Quarter: 2008Q4

REPORT INFORMATION
  Report Type: 
  Country: None (occurrence: None)
  Receive Date: 20081209
  Receipt Date: 20081130
  Transmission Date: 20090506
  Serious: Yes (Death)
  Sender: FDA-Public Use
  Company Number: JP-ASTRAZENECA-2008SE05626

PATIENT

DRUGS (1)
  1. BLOPRESS [Suspect]
     Route: 048

REACTIONS (1)
  - CHEST PAIN [None]
